FAERS Safety Report 14856738 (Version 1)
Quarter: 2018Q2

REPORT INFORMATION
  Report Type: Spontaneous
  Country: US (occurrence: US)
  Receive Date: 20180507
  Receipt Date: 20180507
  Transmission Date: 20180711
  Serious: No
  Sender: FDA-Public Use
  Company Number: US-ROCHE-2021837

PATIENT

DRUGS (2)
  1. ESBRIET [Suspect]
     Active Substance: PIRFENIDONE
     Indication: IDIOPATHIC PULMONARY FIBROSIS
     Route: 065
     Dates: start: 201710
  2. PREDNISONE. [Concomitant]
     Active Substance: PREDNISONE
     Dosage: UNKNOWN
     Route: 065

REACTIONS (1)
  - Blood glucose increased [Unknown]
